FAERS Safety Report 19074357 (Version 2)
Quarter: 2021Q2

REPORT INFORMATION
  Report Type: Spontaneous
  Country: US (occurrence: US)
  Receive Date: 20210330
  Receipt Date: 20210419
  Transmission Date: 20210717
  Serious: Yes (Other)
  Sender: FDA-Public Use
  Company Number: US-INCYTE CORPORATION-2021IN002405

PATIENT

DRUGS (1)
  1. JAKAFI [Suspect]
     Active Substance: RUXOLITINIB
     Indication: MYELOPROLIFERATIVE NEOPLASM
     Dosage: 10 MILLIGRAM, QD
     Route: 048
     Dates: start: 20200601

REACTIONS (3)
  - Off label use [Unknown]
  - Myeloproliferative neoplasm [Unknown]
  - Disease progression [Unknown]

NARRATIVE: CASE EVENT DATE: 20200601
